FAERS Safety Report 8401026-3 (Version None)
Quarter: 2012Q2

REPORT INFORMATION
  Report Type: 
  Country: None (occurrence: None)
  Receive Date: 20120601
  Receipt Date: 20120521
  Transmission Date: 20120825
  Serious: No
  Sender: FDA-Public Use
  Company Number: US-B.I. PHARMACEUTICALS,INC./RIDGEFIELD-2012-BP-11334BP

PATIENT
  Age: 75 Year
  Sex: Male

DRUGS (8)
  1. PRADAXA [Suspect]
     Indication: ATRIAL FIBRILLATION
     Dosage: 300 MG
     Route: 048
     Dates: start: 20110111, end: 20120513
  2. HYDROCHLOROTHIAZIDE [Concomitant]
     Dosage: 12.5 MG
     Route: 048
  3. LABETALOL HCL [Concomitant]
     Dosage: 150 MG
     Route: 048
  4. CALCIUM WITH VITAMIN D [Concomitant]
     Indication: SUPPLEMENTATION THERAPY
     Dosage: 1200 MG
     Route: 048
  5. PRADAXA [Suspect]
     Dosage: 300 MG
     Route: 048
     Dates: start: 20120519, end: 20120520
  6. HYDROXYCHLOR [Concomitant]
     Dosage: 400 MG
     Route: 048
  7. PRAVASTATIN [Concomitant]
     Dosage: 40 MG
     Route: 048
  8. EXFORGE [Concomitant]
     Dosage: 320 MG
     Route: 048

REACTIONS (2)
  - URINARY TRACT INFECTION [None]
  - BLOOD URINE PRESENT [None]
